FAERS Safety Report 14519222 (Version 1)
Quarter: 2018Q1

REPORT INFORMATION
  Report Type: Spontaneous
  Country: NL (occurrence: NL)
  Receive Date: 20180212
  Receipt Date: 20180212
  Transmission Date: 20180509
  Serious: Yes (Hospitalization)
  Sender: FDA-Public Use
  Company Number: NL-ACTELION-A-CH2018-166973

PATIENT
  Age: 17 Year
  Sex: Male
  Weight: 65 kg

DRUGS (8)
  1. TEMAZEPAM. [Concomitant]
     Active Substance: TEMAZEPAM
     Indication: NIEMANN-PICK DISEASE
     Dosage: 3 X 2 PER DAG
     Dates: start: 20131121, end: 20150220
  2. VALERIAAN [Concomitant]
     Active Substance: VALERIAN
     Indication: DEPRESSION
     Dosage: ()
     Dates: start: 201411, end: 201412
  3. ABILIFY [Concomitant]
     Active Substance: ARIPIPRAZOLE
     Dosage: UNK
     Dates: start: 201211, end: 20140101
  4. FLUOXETINE [Concomitant]
     Active Substance: FLUOXETINE HYDROCHLORIDE
     Dosage: UNK
     Dates: start: 201411, end: 201412
  5. MELATONINE [Concomitant]
     Active Substance: MELATONIN
     Indication: DEPRESSION
     Dosage: ()
     Dates: start: 201411, end: 201412
  6. OXAZEPAM. [Concomitant]
     Active Substance: OXAZEPAM
     Dosage: ()
     Dates: start: 201410, end: 201412
  7. OLANZAPINE. [Concomitant]
     Active Substance: OLANZAPINE
     Indication: DEPRESSION
     Dosage: ()
     Dates: start: 201410, end: 201412
  8. ZAVESCA [Suspect]
     Active Substance: MIGLUSTAT
     Indication: NIEMANN-PICK DISEASE
     Dosage: 200 MG, TID
     Route: 048
     Dates: start: 20131121, end: 20150220

REACTIONS (18)
  - Suicide attempt [Recovered/Resolved]
  - Clumsiness [Recovering/Resolving]
  - Diarrhoea [Recovered/Resolved]
  - Sleep apnoea syndrome [Recovered/Resolved]
  - Abnormal behaviour [Recovered/Resolved]
  - Gaze palsy [Not Recovered/Not Resolved]
  - Flatulence [Recovered/Resolved]
  - Cognitive disorder [Recovered/Resolved]
  - Speech disorder [Recovering/Resolving]
  - Head discomfort [Recovered/Resolved]
  - Pallor [Recovered/Resolved]
  - Malaise [Recovered/Resolved]
  - Fatigue [Recovered/Resolved]
  - Confusional state [Recovered/Resolved]
  - Headache [Recovered/Resolved]
  - Tremor [Recovered/Resolved]
  - Depression [Recovered/Resolved]
  - Somnolence [Recovered/Resolved]

NARRATIVE: CASE EVENT DATE: 201311
